FAERS Safety Report 7627365 (Version 2)
Quarter: 2013Q1

REPORT INFORMATION
  Report Type: Spontaneous
  Country: US (occurrence: US)
  Receive Date: 20101013
  Receipt Date: 20130124
  Transmission Date: 20140127
  Serious: No
  Sender: FDA-Public Use
  Company Number: US-ASTRAZENECA-2009SE33164

PATIENT
  Sex: Female
  Weight: 86.2 kg

DRUGS (5)
  1. SYMBICORT [Suspect]
     Indication: ASTHMA
     Dosage: 160 MICROGRAM ONE PUFF ONLY AS REQUIRED
     Route: 055
     Dates: start: 200910
  2. SYMBICORT [Suspect]
     Indication: ASTHMA
     Dosage: 80/4.5 2 PUFFS BID
     Route: 055
     Dates: start: 201201
  3. ALBUTEROL [Concomitant]
  4. PROAIR [Concomitant]
     Indication: EMERGENCY CARE
     Route: 055
     Dates: start: 2003
  5. VITAMINS [Concomitant]
     Route: 065

REACTIONS (18)
  - Asthma [Unknown]
  - Chronic fatigue syndrome [Not Recovered/Not Resolved]
  - Asthenia [Not Recovered/Not Resolved]
  - Muscular weakness [Not Recovered/Not Resolved]
  - Chest discomfort [Unknown]
  - Bronchitis [Unknown]
  - Mental impairment [Unknown]
  - Vertigo [Unknown]
  - Fatigue [Unknown]
  - Oropharyngeal pain [Not Recovered/Not Resolved]
  - Dysphonia [Not Recovered/Not Resolved]
  - Disturbance in attention [Not Recovered/Not Resolved]
  - Crying [Not Recovered/Not Resolved]
  - Tearfulness [Not Recovered/Not Resolved]
  - Mood altered [Not Recovered/Not Resolved]
  - Headache [Unknown]
  - Dizziness [Unknown]
  - Off label use [Unknown]
